FAERS Safety Report 12703390 (Version 3)
Quarter: 2017Q1

REPORT INFORMATION
  Report Type: Report from Study
  Country: ES (occurrence: ES)
  Receive Date: 20160831
  Receipt Date: 20170302
  Transmission Date: 20170428
  Serious: Yes (Death, Other)
  Sender: FDA-Public Use
  Company Number: ES-JNJFOC-20160826011

PATIENT

DRUGS (9)
  1. CYTARABINE. [Suspect]
     Active Substance: CYTARABINE
     Indication: DIFFUSE LARGE B-CELL LYMPHOMA
     Route: 050
  2. DEXAMETHASONE. [Suspect]
     Active Substance: DEXAMETHASONE
     Indication: PRODUCT USED FOR UNKNOWN INDICATION
     Route: 048
  3. DOXORUBICIN HYDROCHLORIDE. [Suspect]
     Active Substance: DOXORUBICIN HYDROCHLORIDE
     Indication: DIFFUSE LARGE B-CELL LYMPHOMA
     Route: 037
  4. CYCLOPHOSPHAMIDE. [Suspect]
     Active Substance: CYCLOPHOSPHAMIDE
     Indication: DIFFUSE LARGE B-CELL LYMPHOMA
     Route: 042
  5. DEXAMETHASONE. [Suspect]
     Active Substance: DEXAMETHASONE
     Indication: PRODUCT USED FOR UNKNOWN INDICATION
     Route: 037
  6. VINCRISTINE [Suspect]
     Active Substance: VINCRISTINE
     Indication: DIFFUSE LARGE B-CELL LYMPHOMA
     Dosage: MAXIMAL DOSE 2 MG
     Route: 042
  7. ADRIAMYCIN [Suspect]
     Active Substance: DOXORUBICIN HYDROCHLORIDE
     Indication: DIFFUSE LARGE B-CELL LYMPHOMA
     Route: 042
  8. RITUXIMAB [Suspect]
     Active Substance: RITUXIMAB
     Indication: DIFFUSE LARGE B-CELL LYMPHOMA
     Dosage: ON DAY 1
     Route: 042
  9. PREDNISONE. [Suspect]
     Active Substance: PREDNISONE
     Indication: DIFFUSE LARGE B-CELL LYMPHOMA
     Dosage: FOR 5 DAYS
     Route: 048

REACTIONS (24)
  - Septic shock [Unknown]
  - Febrile neutropenia [Unknown]
  - Neutropenia [Unknown]
  - Anaemia [Unknown]
  - Dyspnoea [Unknown]
  - Paraesthesia [Unknown]
  - Neuropathy peripheral [Unknown]
  - Vomiting [Unknown]
  - Mucosal inflammation [Unknown]
  - Asthenia [Unknown]
  - Decreased appetite [Unknown]
  - Respiratory failure [Fatal]
  - Gastric haemorrhage [Fatal]
  - Alopecia [Unknown]
  - Diarrhoea [Unknown]
  - Constipation [Unknown]
  - Bone pain [Unknown]
  - Pneumonia [Fatal]
  - Sepsis [Fatal]
  - Retching [Unknown]
  - Treatment noncompliance [Unknown]
  - Pyrexia [Unknown]
  - Oral candidiasis [Unknown]
  - Throat irritation [Unknown]
